FAERS Safety Report 7514542-3 (Version None)
Quarter: 2011Q2

REPORT INFORMATION
  Report Type: 
  Country: None (occurrence: None)
  Receive Date: 20110601
  Receipt Date: 20101217
  Transmission Date: 20111010
  Serious: No
  Sender: FDA-Public Use
  Company Number: US-BAYER-2010-004873

PATIENT
  Age: 71 Year
  Sex: Male
  Weight: 163.99 kg

DRUGS (4)
  1. NEXAVAR [Suspect]
     Dosage: 400 MG, BID
     Dates: start: 20090701
  2. ZOMETA [Concomitant]
     Dosage: 40 MG, UNK
  3. LOTENSIN [Concomitant]
     Dosage: 10 MG, QD
  4. TYLENOL W/ CODEINE NO. 3 [Concomitant]
     Dosage: UNK

REACTIONS (5)
  - PALMAR-PLANTAR ERYTHRODYSAESTHESIA SYNDROME [None]
  - FATIGUE [None]
  - DIARRHOEA [None]
  - BLISTER [None]
  - SKIN EXFOLIATION [None]
